FAERS Safety Report 14045511 (Version 1)
Quarter: 2017Q4

REPORT INFORMATION
  Report Type: Spontaneous
  Country: US (occurrence: US)
  Receive Date: 20171005
  Receipt Date: 20171005
  Transmission Date: 20180321
  Serious: No
  Sender: FDA-Public Use
  Company Number: US-ASTRAZENECA-2017SE99587

PATIENT
  Age: 56 Year
  Sex: Female
  Weight: 72.6 kg

DRUGS (3)
  1. PEPCID [Concomitant]
     Active Substance: FAMOTIDINE
     Indication: GASTROOESOPHAGEAL REFLUX DISEASE
     Dosage: UNKNOWN
     Route: 065
     Dates: start: 201708
  2. NEXIUM [Suspect]
     Active Substance: ESOMEPRAZOLE MAGNESIUM
     Indication: GASTROOESOPHAGEAL REFLUX DISEASE
     Dosage: GENERIC, 40 MG AS REQUIRED
     Route: 048
     Dates: start: 201703, end: 201708
  3. NEXIUM [Suspect]
     Active Substance: ESOMEPRAZOLE MAGNESIUM
     Indication: GASTROOESOPHAGEAL REFLUX DISEASE
     Dosage: 40 MG AS REQUIRED UPTO 3 TIMES A WEEK
     Route: 048

REACTIONS (3)
  - Gastrooesophageal reflux disease [Unknown]
  - Off label use [Unknown]
  - Polyp [Recovered/Resolved]

NARRATIVE: CASE EVENT DATE: 201708
